FAERS Safety Report 6944677-5 (Version None)
Quarter: 2010Q3

REPORT INFORMATION
  Report Type: 
  Country: None (occurrence: None)
  Receive Date: 20100827
  Receipt Date: 20100817
  Transmission Date: 20110219
  Serious: Yes (Hospitalization)
  Sender: FDA-Public Use
  Company Number: US-CELGENEUS-163-21880-10070042

PATIENT
  Sex: Male
  Weight: 103.97 kg

DRUGS (9)
  1. REVLIMID [Suspect]
     Indication: MULTIPLE MYELOMA
     Route: 048
     Dates: start: 20090501, end: 20091201
  2. REVLIMID [Suspect]
     Route: 048
     Dates: start: 20080801
  3. DURAGESIC-100 [Suspect]
     Indication: PRODUCT USED FOR UNKNOWN INDICATION
     Route: 065
  4. DURAGESIC-100 [Suspect]
     Route: 065
  5. DECADRON [Concomitant]
     Indication: PRODUCT USED FOR UNKNOWN INDICATION
     Route: 065
     Dates: end: 20091201
  6. LASIX [Concomitant]
     Route: 065
  7. FENTANYL CITRATE [Concomitant]
     Indication: PAIN
     Route: 062
  8. COMPAZINE [Concomitant]
     Indication: NAUSEA
     Route: 048
  9. ACETAMINOPHEN [Concomitant]
     Indication: PRODUCT USED FOR UNKNOWN INDICATION
     Route: 065

REACTIONS (5)
  - ASTHENIA [None]
  - BACK PAIN [None]
  - GENERAL PHYSICAL HEALTH DETERIORATION [None]
  - ORAL PAIN [None]
  - RADIATION ASSOCIATED PAIN [None]
